FAERS Safety Report 13966008 (Version 3)
Quarter: 2017Q3

REPORT INFORMATION
  Report Type: Spontaneous
  Country: TR (occurrence: TR)
  Receive Date: 20170913
  Receipt Date: 20170922
  Transmission Date: 20171128
  Serious: Yes (Other)
  Sender: FDA-Public Use
  Company Number: TR-PFIZER INC-2017389379

PATIENT
  Age: 41 Year
  Sex: Female

DRUGS (1)
  1. METHYLPREDNISOLONE. [Suspect]
     Active Substance: METHYLPREDNISOLONE
     Indication: LIP SWELLING
     Dosage: 32 MG, DAILY
     Route: 048

REACTIONS (1)
  - Diabetes mellitus [Recovered/Resolved]
